FAERS Safety Report 8743982 (Version 14)
Quarter: 2017Q3

REPORT INFORMATION
  Report Type: Spontaneous
  Country: CA (occurrence: CA)
  Receive Date: 20120824
  Receipt Date: 20170913
  Transmission Date: 20171128
  Serious: Yes (Hospitalization, Other)
  Sender: FDA-Public Use
  Company Number: CA-ROCHE-1103093

PATIENT
  Age: 12 Year
  Sex: Male

DRUGS (18)
  1. VENTOLIN [Concomitant]
     Active Substance: ALBUTEROL SULFATE
     Indication: ASTHMA
     Dosage: 2 DF, PRN
     Route: 055
     Dates: start: 20020101
  2. XOLAIR [Suspect]
     Active Substance: OMALIZUMAB
     Route: 058
  3. XOLAIR [Suspect]
     Active Substance: OMALIZUMAB
     Route: 058
     Dates: start: 20161219
  4. XOLAIR [Suspect]
     Active Substance: OMALIZUMAB
     Route: 058
     Dates: start: 20140319
  5. ZENHALE [Concomitant]
     Active Substance: FORMOTEROL FUMARATE\MOMETASONE FUROATE
     Indication: ASTHMA
     Dosage: 2 DF (2 PUFFS), BID?200/5 MCG,  2 PUFFS DAILY
     Route: 055
     Dates: start: 20140101
  6. EPIPEN [Concomitant]
     Active Substance: EPINEPHRINE
     Indication: ANAPHYLACTIC REACTION
     Dosage: UNK UNK, PRN
     Route: 065
  7. XOLAIR [Suspect]
     Active Substance: OMALIZUMAB
     Indication: ASTHMA
     Dosage: 375 MG, BIW
     Route: 058
     Dates: start: 20120517
  8. XOLAIR [Suspect]
     Active Substance: OMALIZUMAB
     Route: 058
     Dates: start: 20170612
  9. VENTOLIN [Concomitant]
     Active Substance: ALBUTEROL SULFATE
     Indication: DYSPNOEA
     Route: 065
  10. XOLAIR [Suspect]
     Active Substance: OMALIZUMAB
     Dosage: UNK
     Route: 058
     Dates: start: 20130904, end: 20140625
  11. SINGULAIR [Concomitant]
     Active Substance: MONTELUKAST SODIUM
     Indication: ASTHMA
     Dosage: 1 DF, QD
     Route: 055
     Dates: start: 20060101
  12. XOLAIR [Suspect]
     Active Substance: OMALIZUMAB
     Route: 058
     Dates: start: 20161123
  13. XOLAIR [Suspect]
     Active Substance: OMALIZUMAB
     Dosage: UNK
     Route: 058
     Dates: start: 20170814
  14. XOLAIR [Suspect]
     Active Substance: OMALIZUMAB
     Dosage: UNK
     Route: 058
     Dates: start: 20121105
  15. XOLAIR [Suspect]
     Active Substance: OMALIZUMAB
     Route: 058
     Dates: start: 20170529
  16. XOLAIR [Suspect]
     Active Substance: OMALIZUMAB
     Dosage: UNK
     Route: 058
     Dates: start: 20170901
  17. XOLAIR [Suspect]
     Active Substance: OMALIZUMAB
     Route: 058
  18. VENTOLIN [Concomitant]
     Active Substance: ALBUTEROL SULFATE
     Indication: WHEEZING
     Dosage: 6 DF (6 DOSES), QD (EACH DOSE 2-4 PUFFS)
     Route: 055

REACTIONS (26)
  - Heart rate decreased [Unknown]
  - Dizziness [Recovering/Resolving]
  - Vomiting [Recovering/Resolving]
  - Hypersensitivity [Unknown]
  - Middle insomnia [Unknown]
  - Blood pressure systolic decreased [Unknown]
  - Blood pressure systolic increased [Unknown]
  - Vomiting [Recovered/Resolved]
  - Weight increased [Unknown]
  - Arthropod sting [Recovered/Resolved]
  - Pyrexia [Recovering/Resolving]
  - Dysphagia [Unknown]
  - Eosinophilic oesophagitis [Unknown]
  - Diarrhoea [Recovering/Resolving]
  - Nausea [Unknown]
  - Pain [Not Recovered/Not Resolved]
  - Hypophagia [Unknown]
  - Chills [Recovering/Resolving]
  - Malaise [Unknown]
  - Oesophageal ulcer [Unknown]
  - Asthma [Unknown]
  - Throat tightness [Recovered/Resolved]
  - Gastroenteritis viral [Recovering/Resolving]
  - Hyperhidrosis [Recovering/Resolving]
  - Nausea [Recovering/Resolving]
  - Blood pressure diastolic decreased [Unknown]

NARRATIVE: CASE EVENT DATE: 20120808
